FAERS Safety Report 24367433 (Version 1)
Quarter: 2024Q3

REPORT INFORMATION
  Report Type: Report from Study
  Country: US (occurrence: US)
  Receive Date: 20240926
  Receipt Date: 20240926
  Transmission Date: 20241017
  Serious: No
  Sender: ACADIA PHARMACEUTICALS
  Company Number: US-ACADIA PHARMACEUTICALS INC.-ACA-2024-PIM-005390

PATIENT
  Sex: Male

DRUGS (17)
  1. NUPLAZID [Suspect]
     Active Substance: PIMAVANSERIN TARTRATE
     Indication: Parkinson^s disease
     Dosage: 34 MILLIGRAM, QD
     Route: 048
     Dates: start: 202408
  2. NUPLAZID [Suspect]
     Active Substance: PIMAVANSERIN TARTRATE
     Dosage: 34 MILLIGRAM, QD
     Route: 048
  3. MILK OF MAGNESIA [Concomitant]
     Active Substance: MAGNESIUM HYDROXIDE
  4. ASPIRIN [Concomitant]
     Active Substance: ASPIRIN
  5. ZINC [Concomitant]
     Active Substance: ZINC
  6. VITAMIN C [Concomitant]
     Active Substance: ASCORBIC ACID
  7. NEXIUM [Concomitant]
     Active Substance: ESOMEPRAZOLE MAGNESIUM
  8. VITAMIN D3 [Concomitant]
     Active Substance: CHOLECALCIFEROL
  9. NIFEDIPINE [Concomitant]
     Active Substance: NIFEDIPINE
  10. GABAPENTIN [Concomitant]
     Active Substance: GABAPENTIN
  11. CIPRO [Concomitant]
     Active Substance: CIPROFLOXACIN HYDROCHLORIDE
  12. RIVASTIGMINE [Concomitant]
     Active Substance: RIVASTIGMINE
  13. RYTARY [Concomitant]
     Active Substance: CARBIDOPA\LEVODOPA
  14. ROSUVASTATIN [Concomitant]
     Active Substance: ROSUVASTATIN\ROSUVASTATIN CALCIUM
  15. GEMTESA [Concomitant]
     Active Substance: VIBEGRON
  16. FINASTERIDE [Concomitant]
     Active Substance: FINASTERIDE
  17. COREG [Concomitant]
     Active Substance: CARVEDILOL

REACTIONS (1)
  - Product use issue [Recovered/Resolved]
